FAERS Safety Report 8470936-3 (Version None)
Quarter: 2012Q2

REPORT INFORMATION
  Report Type: 
  Country: None (occurrence: None)
  Receive Date: 20120627
  Receipt Date: 20120619
  Transmission Date: 20120825
  Serious: No
  Sender: FDA-Public Use
  Company Number: US-B.I. PHARMACEUTICALS,INC./RIDGEFIELD-2012-BP-09355BP

PATIENT
  Sex: Female
  Weight: 136 kg

DRUGS (9)
  1. METOPROLOL TARTRATE [Concomitant]
     Indication: HYPERTENSION
  2. PRADAXA [Suspect]
     Indication: DEEP VEIN THROMBOSIS
     Dosage: 300 MG
     Route: 048
     Dates: start: 20111204, end: 20120412
  3. ALLOPURINOL [Concomitant]
     Indication: GOUT
  4. CARDIZEM [Concomitant]
     Indication: HYPERTENSION
  5. LANTUS [PLUS HUMALOG] [Concomitant]
     Indication: DIABETES MELLITUS
  6. PRADAXA [Suspect]
     Indication: PULMONARY EMBOLISM
  7. INSULIN [Concomitant]
  8. FUROSEMIDE PLUS KCL [Concomitant]
     Indication: OEDEMA
  9. [LANTUS PLUS] HUMALOG [Concomitant]

REACTIONS (11)
  - SWELLING [None]
  - SKIN HAEMORRHAGE [None]
  - VENOUS INSUFFICIENCY [None]
  - ABDOMINAL PAIN UPPER [None]
  - CONTUSION [None]
  - MALAISE [None]
  - SPLEEN CONGESTION [None]
  - SKIN ULCER [None]
  - DISCOMFORT [None]
  - LACERATION [None]
  - HAEMORRHAGE [None]
